FAERS Safety Report 9026747 (Version 1)
Quarter: 2013Q1

REPORT INFORMATION
  Report Type: Spontaneous
  Country: US (occurrence: None)
  Receive Date: 20130108
  Receipt Date: 20130108
  Transmission Date: 20140127
  Serious: Yes (Hospitalization, Other)
  Sender: FDA-Public Use
  Company Number: VAL_01234_2012

PATIENT
  Sex: Female

DRUGS (7)
  1. LOPRESSOR 50 MG (NOT SPECIFIED) [Suspect]
     Indication: ATRIAL FIBRILLATION
     Dosage: 12.5 MG, (SHE IS TAKING ONE QUARTER OF THE PIILL IN THE MORNING AND ONE QUARTER IN THE EVENINGL))
  2. METOPROLOL [Suspect]
     Indication: ATRIAL FIBRILLATION
     Dosage: DF
  3. ACTONEL [Concomitant]
  4. MULTIVITAMIN /02358601/ [Concomitant]
  5. CITRACAL [Concomitant]
  6. COD LIVER OIL [Concomitant]
  7. CALCIUM [Concomitant]

REACTIONS (5)
  - Wrong technique in drug usage process [None]
  - Drug effect decreased [None]
  - Product quality issue [None]
  - Tinnitus [None]
  - Atrial fibrillation [None]
